FAERS Safety Report 11045136 (Version 1)
Quarter: 2015Q2

REPORT INFORMATION
  Report Type: Spontaneous
  Country: NO (occurrence: NO)
  Receive Date: 20150417
  Receipt Date: 20150417
  Transmission Date: 20150821
  Serious: Yes (Hospitalization, Disabling)
  Sender: FDA-Public Use
  Company Number: NO-SA-2015SA048588

PATIENT
  Age: 73 Year
  Sex: Male
  Weight: 94 kg

DRUGS (6)
  1. EZETROL [Concomitant]
     Active Substance: EZETIMIBE
     Route: 048
  2. PLAVIX [Suspect]
     Active Substance: CLOPIDOGREL BISULFATE
     Indication: ISCHAEMIC STROKE
     Route: 048
     Dates: start: 200704, end: 20150321
  3. LIPITOR [Concomitant]
     Active Substance: ATORVASTATIN CALCIUM
     Route: 048
  4. VALSARTAN. [Concomitant]
     Active Substance: VALSARTAN
     Route: 048
  5. MAREVAN [Suspect]
     Active Substance: WARFARIN SODIUM
     Indication: ATRIAL FIBRILLATION
     Dosage: DOSING AFTER INR (2,0 - 3,0)
     Route: 048
     Dates: start: 201404, end: 20150321
  6. METOPROLOL [Concomitant]
     Active Substance: METOPROLOL
     Dosage: SANDOZ
     Route: 048

REACTIONS (2)
  - Hemianopia homonymous [Recovering/Resolving]
  - Haemorrhagic stroke [Recovered/Resolved with Sequelae]

NARRATIVE: CASE EVENT DATE: 20150321
